FAERS Safety Report 15316310 (Version 1)
Quarter: 2018Q3

REPORT INFORMATION
  Report Type: Spontaneous
  Country: US (occurrence: US)
  Receive Date: 20180824
  Receipt Date: 20180824
  Transmission Date: 20181010
  Serious: No
  Sender: FDA-Public Use
  Company Number: US-KVK-TECH, INC-2054194

PATIENT
  Age: 83 Year
  Sex: Female
  Weight: 91.36 kg

DRUGS (1)
  1. DIETHYLPROPION HYDROCHLORIDE. [Suspect]
     Active Substance: DIETHYLPROPION HYDROCHLORIDE
     Indication: DECREASED APPETITE
     Route: 048
     Dates: start: 20180719

REACTIONS (4)
  - Product solubility abnormal [Not Recovered/Not Resolved]
  - Product physical issue [Not Recovered/Not Resolved]
  - Product taste abnormal [Not Recovered/Not Resolved]
  - Drug ineffective [Not Recovered/Not Resolved]

NARRATIVE: CASE EVENT DATE: 20180719
